FAERS Safety Report 5286220-5 (Version None)
Quarter: 2007Q2

REPORT INFORMATION
  Report Type: 
  Country: None (occurrence: None)
  Receive Date: 20070404
  Receipt Date: 20070327
  Transmission Date: 20071010
  Serious: Yes (Hospitalization, Other)
  Sender: FDA-Public Use
  Company Number: 2007PK00727

PATIENT
  Age: 35 Year
  Sex: Male

DRUGS (4)
  1. SEROQUEL [Suspect]
     Indication: SCHIZOPHRENIA
     Dosage: 600 MG PER DAY FOR ABOUT 6 MONTHS
     Route: 048
  2. SEROQUEL [Suspect]
     Route: 048
     Dates: start: 20070101, end: 20070317
  3. SEROQUEL [Suspect]
     Route: 048
     Dates: start: 20070117, end: 20070317
  4. ZYPREXA [Concomitant]
     Route: 048

REACTIONS (5)
  - INTENTIONAL OVERDOSE [None]
  - PNEUMONIA ASPIRATION [None]
  - RENAL FAILURE ACUTE [None]
  - RHABDOMYOLYSIS [None]
  - SUICIDE ATTEMPT [None]
